FAERS Safety Report 4489861-8 (Version None)
Quarter: 2004Q4

REPORT INFORMATION
  Report Type: 
  Country: None (occurrence: None)
  Receive Date: 20041101
  Receipt Date: 20041019
  Transmission Date: 20050328
  Serious: Yes (Hospitalization)
  Sender: FDA-Public Use
  Company Number: BR-MERCK-0410BRA00251

PATIENT
  Age: 40 Year
  Sex: Female

DRUGS (4)
  1. VIOXX [Suspect]
     Indication: POST PROCEDURAL PAIN
     Route: 048
     Dates: start: 20010622, end: 20040801
  2. VIOXX [Suspect]
     Indication: INFLAMMATION
     Route: 048
     Dates: start: 20010622, end: 20040801
  3. CAPTOPRIL [Concomitant]
     Indication: HYPERTENSION
     Route: 065
     Dates: start: 20010101, end: 20020101
  4. CAPTOPRIL [Concomitant]
     Route: 065
     Dates: start: 20040901

REACTIONS (4)
  - CARDIOMEGALY [None]
  - CHEST PAIN [None]
  - HYPERTENSION [None]
  - OEDEMA PERIPHERAL [None]
